FAERS Safety Report 7738044-4 (Version None)
Quarter: 2011Q3

REPORT INFORMATION
  Report Type: 
  Country: None (occurrence: None)
  Receive Date: 20110908
  Receipt Date: 20110825
  Transmission Date: 20111222
  Serious: Yes (Other)
  Sender: FDA-Public Use
  Company Number: US-JNJFOC-20110900308

PATIENT
  Sex: Female

DRUGS (1)
  1. LISTERINE TOTAL CARE PLUS WHITENING [Suspect]
     Indication: DENTAL DISORDER PROPHYLAXIS
     Dosage: USED ONCE A DAY (AMOUNT UNSPECIFIED)
     Route: 048
     Dates: end: 20110101

REACTIONS (2)
  - APPLICATION SITE BURN [None]
  - ORAL MUCOSAL EXFOLIATION [None]
